FAERS Safety Report 13502252 (Version 1)
Quarter: 2017Q2

REPORT INFORMATION
  Report Type: Spontaneous
  Country: ES (occurrence: ES)
  Receive Date: 20170502
  Receipt Date: 20170502
  Transmission Date: 20170830
  Serious: Yes (Other)
  Sender: FDA-Public Use
  Company Number: ES-ZYDUS-014703

PATIENT
  Age: 73 Year
  Sex: Female

DRUGS (2)
  1. ESCITALOPRAM [Suspect]
     Active Substance: ESCITALOPRAM OXALATE
     Indication: DEPRESSION
     Route: 065
  2. ESCITALOPRAM [Suspect]
     Active Substance: ESCITALOPRAM OXALATE
     Indication: DEPRESSION
     Route: 065

REACTIONS (8)
  - Choroidal detachment [Recovering/Resolving]
  - Choroidal effusion [Recovered/Resolved]
  - Headache [Recovering/Resolving]
  - Chorioretinal folds [Recovering/Resolving]
  - Angle closure glaucoma [Recovering/Resolving]
  - Visual acuity reduced [Recovering/Resolving]
  - Myopia [Recovering/Resolving]
  - Choroiditis [Recovering/Resolving]
